FAERS Safety Report 6284433-7 (Version None)
Quarter: 2009Q3

REPORT INFORMATION
  Report Type: 
  Country: None (occurrence: None)
  Receive Date: 20090727
  Receipt Date: 20090720
  Transmission Date: 20100115
  Serious: Yes (Death)
  Sender: FDA-Public Use
  Company Number: US-ROCHE-644804

PATIENT
  Age: 27 Year
  Sex: Female

DRUGS (10)
  1. DIAZEPAM [Suspect]
     Indication: DRUG USE FOR UNKNOWN INDICATION
     Route: 065
  2. DOXEPIN HCL [Interacting]
     Indication: DRUG USE FOR UNKNOWN INDICATION
     Route: 065
  3. HYDROCODONE [Interacting]
     Dosage: TAKEN AS NEEDED (PRN)
     Route: 048
  4. HYDROCODONE [Interacting]
     Route: 048
  5. HYDROCODONE [Interacting]
     Route: 048
  6. OXYCODONE [Interacting]
     Route: 065
  7. MORPHINE [Interacting]
     Dosage: TAKEN EVERY MORNING (Q A.M.)
     Route: 065
  8. METHADONE HCL [Interacting]
     Dosage: TAKEN AT NIGHT
     Route: 065
  9. NORDIAZEPAM [Interacting]
     Indication: DRUG USE FOR UNKNOWN INDICATION
     Route: 065
  10. TEMAZEPAM [Interacting]
     Indication: DRUG USE FOR UNKNOWN INDICATION
     Route: 065

REACTIONS (3)
  - DRUG INTERACTION [None]
  - OVERDOSE [None]
  - SYNCOPE [None]
